FAERS Safety Report 20303406 (Version 1)
Quarter: 2022Q1

REPORT INFORMATION
  Report Type: Spontaneous
  Country: US (occurrence: US)
  Receive Date: 20220106
  Receipt Date: 20220106
  Transmission Date: 20220424
  Serious: Yes (Other)
  Sender: FDA-Public Use
  Company Number: US-NOVARTISPH-NVSC2022US001114

PATIENT
  Age: 64 Year
  Sex: Male

DRUGS (2)
  1. RANITIDINE [Suspect]
     Active Substance: RANITIDINE
     Indication: Stress
     Dosage: 150 MG, UNKNOWN
     Route: 065
     Dates: start: 201501, end: 201801
  2. RANITIDINE [Suspect]
     Active Substance: RANITIDINE
     Indication: Stress
     Dosage: 150 MG, UNKNOWN
     Route: 065
     Dates: start: 201501, end: 201801

REACTIONS (3)
  - Bladder cancer [Recovering/Resolving]
  - Prostate cancer [Recovering/Resolving]
  - Product use in unapproved indication [Unknown]

NARRATIVE: CASE EVENT DATE: 20160101
